FAERS Safety Report 25811951 (Version 1)
Quarter: 2025Q3

REPORT INFORMATION
  Report Type: Report from Study
  Country: CO (occurrence: CO)
  Receive Date: 20250917
  Receipt Date: 20250917
  Transmission Date: 20251020
  Serious: Yes (Hospitalization)
  Sender: UCB
  Company Number: CO-UCBSA-2025056561

PATIENT
  Age: 77 Year
  Sex: Female

DRUGS (1)
  1. ROTIGOTINE [Suspect]
     Active Substance: ROTIGOTINE
     Indication: Parkinson^s disease
     Dosage: 6 MILLIGRAM, ONCE DAILY (QD)
     Route: 062
     Dates: start: 20250530, end: 20250826

REACTIONS (6)
  - Blood potassium decreased [Recovered/Resolved]
  - Vitamin B12 decreased [Recovered/Resolved]
  - Decreased appetite [Recovered/Resolved]
  - Therapy interrupted [Unknown]
  - Product dispensing issue [Unknown]
  - Off label use [Unknown]

NARRATIVE: CASE EVENT DATE: 20250530
